FAERS Safety Report 8022580-X (Version None)
Quarter: 2012Q1

REPORT INFORMATION
  Report Type: 
  Country: None (occurrence: None)
  Receive Date: 20120104
  Receipt Date: 20120103
  Transmission Date: 20120608
  Serious: Yes (Hospitalization)
  Sender: FDA-Public Use
  Company Number: US-GLAXOSMITHKLINE-A0948257A

PATIENT
  Sex: Female

DRUGS (2)
  1. TYKERB [Suspect]
     Indication: PRODUCT USED FOR UNKNOWN INDICATION
     Dosage: 1000MG PER DAY
     Route: 065
     Dates: start: 20110927, end: 20111006
  2. ANTIBIOTICS [Concomitant]

REACTIONS (5)
  - COUGH [None]
  - PULMONARY EMBOLISM [None]
  - DYSPNOEA [None]
  - RESPIRATORY TRACT CONGESTION [None]
  - DIARRHOEA [None]
